FAERS Safety Report 8058048-4 (Version None)
Quarter: 2012Q1

REPORT INFORMATION
  Report Type: 
  Country: None (occurrence: None)
  Receive Date: 20120113
  Receipt Date: 20120106
  Transmission Date: 20120608
  Serious: Yes (Hospitalization)
  Sender: FDA-Public Use
  Company Number: DKLU1075264

PATIENT
  Age: 77 Year
  Sex: Male

DRUGS (11)
  1. TRILEPTAL [Suspect]
     Indication: CONVULSION
     Dosage: 300 MG MILLIGRAM(S), 2 IN 1 D, ORAL
     Route: 048
     Dates: start: 20110917, end: 20111014
  2. PAROXETINE HYDROCHLORIDE [Suspect]
     Indication: DEPRESSION
     Dosage: 1 DF DOSAGE FORM, 1 IN 1 D, ORAL
     Route: 048
     Dates: start: 20110901, end: 20110927
  3. ACETAMINOPHEN [Concomitant]
  4. SINEMET [Concomitant]
  5. MACROGOL (MACROGOL) [Concomitant]
  6. ATORVASTATIN CALCIUM [Concomitant]
  7. IMOVANE( ZOPICLONE) [Concomitant]
  8. ONFI [Suspect]
     Indication: CONVULSION
     Dosage: 5 MG MILLIGRAM(S), 1 IN 1 D, ORAL
     Route: 048
     Dates: start: 20110916, end: 20111009
  9. ASPIRIN [Concomitant]
  10. EUPANTOL (PANTOPRAZOLE SODIUM SESQUIHYDRATE) (20 MG, GASTRO RESISTANT [Suspect]
     Indication: PRODUCT USED FOR UNKNOWN INDICATION
     Dosage: 20 MG MILLIGRAM(S), 1 IN 1 D, ORAL
     Route: 048
     Dates: start: 20110529
  11. DEROGYL (CALCIFEDIOL) [Concomitant]

REACTIONS (3)
  - HYPONATRAEMIA [None]
  - SOMNOLENCE [None]
  - CONFUSIONAL STATE [None]
